FAERS Safety Report 12285282 (Version 4)
Quarter: 2017Q2

REPORT INFORMATION
  Report Type: Report from Study
  Country: IN (occurrence: IN)
  Receive Date: 20160420
  Receipt Date: 20170616
  Transmission Date: 20170830
  Serious: Yes (Hospitalization)
  Sender: FDA-Public Use
  Company Number: PHHY2011IN83716

PATIENT
  Age: 46 Year
  Sex: Male

DRUGS (2)
  1. GLIVEC [Suspect]
     Active Substance: IMATINIB MESYLATE
     Indication: CHRONIC MYELOID LEUKAEMIA
     Dosage: 400 MG, UNK
     Route: 048
  2. GLIVEC [Suspect]
     Active Substance: IMATINIB MESYLATE
     Dosage: 800 MG, UNK
     Route: 048

REACTIONS (6)
  - Swelling [Unknown]
  - Spinal disorder [Unknown]
  - Tuberculosis [Unknown]
  - Abdominal discomfort [Unknown]
  - Hypertension [Unknown]
  - Pyrexia [Unknown]

NARRATIVE: CASE EVENT DATE: 201604
